FAERS Safety Report 23803442 (Version 1)
Quarter: 2024Q2

REPORT INFORMATION
  Report Type: Spontaneous
  Country: US (occurrence: None)
  Receive Date: 20240501
  Receipt Date: 20240501
  Transmission Date: 20240716
  Serious: No
  Sender: FDA-Public Use
  Company Number: US-Axsome Therapeutics, Inc.-AXS202309-001246

PATIENT
  Age: 34 Year
  Sex: Male

DRUGS (5)
  1. SUNOSI [Suspect]
     Active Substance: SOLRIAMFETOL
     Indication: Product used for unknown indication
     Dosage: UNK
     Route: 065
  2. XYREM [Suspect]
     Active Substance: SODIUM OXYBATE
     Indication: Narcolepsy
     Dosage: UNK
     Route: 065
  3. XYREM [Suspect]
     Active Substance: SODIUM OXYBATE
     Indication: Somnolence
  4. PROVIGIL [Suspect]
     Active Substance: MODAFINIL
     Indication: Product used for unknown indication
     Dosage: UNK
     Route: 065
  5. NUVIGIL [Concomitant]
     Active Substance: ARMODAFINIL
     Indication: Product used for unknown indication
     Dosage: UNK
     Route: 065

REACTIONS (14)
  - Anger [Unknown]
  - Frustration tolerance decreased [Unknown]
  - Irritability [Unknown]
  - Crying [Unknown]
  - Decreased appetite [Unknown]
  - Muscular weakness [Unknown]
  - Disorientation [Unknown]
  - Peripheral coldness [Unknown]
  - Respiration abnormal [Unknown]
  - Snoring [Unknown]
  - Unevaluable event [Unknown]
  - Nausea [Unknown]
  - Hyperhidrosis [Unknown]
  - Weight decreased [Unknown]
